FAERS Safety Report 8378309-9 (Version None)
Quarter: 2012Q2

REPORT INFORMATION
  Report Type: 
  Country: None (occurrence: None)
  Receive Date: 20120522
  Receipt Date: 20120518
  Transmission Date: 20120825
  Serious: Yes (Other)
  Sender: FDA-Public Use
  Company Number: CY-PFIZER INC-2012118545

PATIENT

DRUGS (3)
  1. MEDROL [Suspect]
     Dosage: 4 MG, 2X/DAY (MORNING AND EVENING)
     Route: 064
     Dates: start: 20120402, end: 20120406
  2. MEDROL [Suspect]
     Dosage: 4 MG, 1X/DAY
     Route: 064
     Dates: start: 20120407, end: 20120413
  3. MEDROL [Suspect]
     Indication: LARYNGITIS
     Dosage: 8 MG, 2X/DAY (MORNING AND EVENING)
     Route: 064
     Dates: start: 20120329, end: 20120401

REACTIONS (2)
  - MATERNAL EXPOSURE TIMING UNSPECIFIED [None]
  - FOETAL GROWTH RESTRICTION [None]
